FAERS Safety Report 7324779-4 (Version None)
Quarter: 2011Q1

REPORT INFORMATION
  Report Type: 
  Country: None (occurrence: None)
  Receive Date: 20110301
  Receipt Date: 20110126
  Transmission Date: 20110831
  Serious: No
  Sender: FDA-Public Use
  Company Number: US-BAYER-2011-013619

PATIENT
  Sex: Female
  Weight: 75 kg

DRUGS (6)
  1. PREDNISONE [Concomitant]
  2. PLAQUENIL [Concomitant]
     Dosage: DAILY DOSE 400 MG
     Route: 048
  3. METHOTREXATE [Concomitant]
  4. ALEVE (CAPLET) [Suspect]
     Indication: HEADACHE
     Dosage: 5 TABLETS  PRN
  5. VITAMIN D [Concomitant]
  6. FOLIC ACID [Concomitant]
     Dosage: DAILY DOSE 1 DF
     Route: 048

REACTIONS (1)
  - NO ADVERSE EVENT [None]
